FAERS Safety Report 4376281-X (Version None)
Quarter: 2004Q2

REPORT INFORMATION
  Report Type: 
  Country: None (occurrence: None)
  Receive Date: 20040608
  Receipt Date: 20031210
  Transmission Date: 20050107
  Serious: Yes (Other)
  Sender: FDA-Public Use
  Company Number: 200314654BCC

PATIENT
  Age: 70 Year
  Sex: Female
  Weight: 61.2356 kg

DRUGS (4)
  1. ALEVE [Suspect]
     Indication: BACK PAIN
     Dosage: 220 MG, BID, ORAL; 220 MG, ONCE, ORAL
     Route: 048
     Dates: start: 20031210
  2. ALEVE [Suspect]
     Indication: PAIN IN EXTREMITY
     Dosage: 220 MG, BID, ORAL; 220 MG, ONCE, ORAL
     Route: 048
     Dates: start: 20031210
  3. ALEVE [Suspect]
     Indication: BACK PAIN
     Dosage: 220 MG, BID, ORAL; 220 MG, ONCE, ORAL
     Route: 048
     Dates: start: 20031212
  4. ALEVE [Suspect]
     Indication: PAIN IN EXTREMITY
     Dosage: 220 MG, BID, ORAL; 220 MG, ONCE, ORAL
     Route: 048
     Dates: start: 20031212

REACTIONS (4)
  - HAEMATOCHEZIA [None]
  - HYPERSENSITIVITY [None]
  - PRURITUS GENERALISED [None]
  - RASH [None]
